FAERS Safety Report 8231965-8 (Version None)
Quarter: 2012Q1

REPORT INFORMATION
  Report Type: 
  Country: None (occurrence: None)
  Receive Date: 20120323
  Receipt Date: 20120307
  Transmission Date: 20120608
  Serious: Yes (Death)
  Sender: FDA-Public Use
  Company Number: GR-ROCHE-1034848

PATIENT
  Sex: Female
  Weight: 58 kg

DRUGS (5)
  1. BONIVA [Suspect]
     Dates: start: 20080918
  2. BONIVA [Suspect]
     Dates: start: 20080828
  3. BONIVA [Suspect]
     Indication: BREAST CANCER
     Dates: start: 20080529
  4. BONIVA [Suspect]
     Dates: start: 20080619
  5. BONIVA [Suspect]
     Dates: start: 20080731

REACTIONS (1)
  - DISEASE PROGRESSION [None]
